FAERS Safety Report 6194459-X (Version None)
Quarter: 2009Q2

REPORT INFORMATION
  Report Type: 
  Country: None (occurrence: None)
  Receive Date: 20090519
  Receipt Date: 20090508
  Transmission Date: 20091009
  Serious: Yes (Other)
  Sender: FDA-Public Use
  Company Number: PHHY2009GB14692

PATIENT
  Sex: Male
  Weight: 72 kg

DRUGS (1)
  1. DESFERAL [Suspect]
     Indication: IRON OVERLOAD
     Dosage: UNK
     Route: 058
     Dates: start: 20080912

REACTIONS (3)
  - DRUG HYPERSENSITIVITY [None]
  - INJECTION SITE INFLAMMATION [None]
  - PHLEBITIS [None]
